FAERS Safety Report 12428159 (Version 4)
Quarter: 2018Q1

REPORT INFORMATION
  Report Type: Spontaneous
  Country: US (occurrence: US)
  Receive Date: 20160602
  Receipt Date: 20180319
  Transmission Date: 20180508
  Serious: Yes (Hospitalization, Other)
  Sender: FDA-Public Use
  Company Number: US-ELI_LILLY_AND_COMPANY-US201605011184

PATIENT
  Age: 49 Year
  Sex: Male
  Weight: 134.24 kg

DRUGS (23)
  1. WARFARIN [Concomitant]
     Active Substance: WARFARIN
     Indication: THROMBOSIS
     Dosage: UNK, UNKNOWN
     Route: 065
     Dates: start: 2014
  2. AXIRON [Suspect]
     Active Substance: TESTOSTERONE
     Indication: ANDROGEN REPLACEMENT THERAPY
     Dosage: 60 MG, QD
     Route: 062
     Dates: start: 2014, end: 201406
  3. AMLODIPINE BENAZEPRIL [Concomitant]
     Active Substance: AMLODIPINE BESYLATE\BENAZEPRIL HYDROCHLORIDE
     Indication: HYPERTENSION
     Dosage: UNK UNK, QD
     Route: 048
     Dates: start: 2013
  4. GABAPENTIN. [Concomitant]
     Active Substance: GABAPENTIN
     Indication: PAIN
  5. IBUPROFEN. [Concomitant]
     Active Substance: IBUPROFEN
     Indication: PAIN
     Dosage: UNK, UNKNOWN
     Route: 065
     Dates: start: 2012
  6. INVOKANA [Concomitant]
     Active Substance: CANAGLIFLOZIN
     Indication: TYPE 2 DIABETES MELLITUS
     Dosage: 300 MG, QD
     Route: 048
     Dates: start: 2014
  7. ATORVASTATIN [Concomitant]
     Active Substance: ATORVASTATIN
     Indication: BLOOD CHOLESTEROL INCREASED
     Dosage: 40 MG, QD
     Route: 048
     Dates: start: 2001, end: 2014
  8. ESCITALOPRAM [Concomitant]
     Active Substance: ESCITALOPRAM OXALATE
     Indication: PRODUCT USED FOR UNKNOWN INDICATION
     Dosage: UNK, UNKNOWN
     Route: 065
     Dates: start: 2014
  9. METHOCARBAMOL. [Concomitant]
     Active Substance: METHOCARBAMOL
     Indication: PAIN
  10. TRAMADOL. [Concomitant]
     Active Substance: TRAMADOL
     Indication: PAIN
     Dosage: UNK, UNKNOWN
     Route: 065
     Dates: start: 2014
  11. XARELTO [Concomitant]
     Active Substance: RIVAROXABAN
     Indication: ANTICOAGULANT THERAPY
     Dosage: UNK, UNKNOWN
     Route: 065
     Dates: start: 2015
  12. HYDROCODONE [Concomitant]
     Active Substance: HYDROCODONE
     Indication: PAIN
     Dosage: UNK, UNKNOWN
     Route: 065
     Dates: start: 2014
  13. VILAZODONE [Concomitant]
     Active Substance: VILAZODONE
     Indication: PRODUCT USED FOR UNKNOWN INDICATION
     Dosage: UNK, UNKNOWN
     Route: 065
     Dates: start: 2014
  14. VITAMIN D                          /00107901/ [Concomitant]
     Active Substance: ERGOCALCIFEROL
     Indication: PRODUCT USED FOR UNKNOWN INDICATION
     Dosage: 50000 U, MONTHLY (1/M)
     Route: 030
     Dates: start: 2015
  15. METOPROLOL. [Concomitant]
     Active Substance: METOPROLOL
     Indication: HYPERTENSION
     Dosage: 52 MG, QD
     Route: 048
     Dates: start: 2014
  16. LISINOPRIL. [Concomitant]
     Active Substance: LISINOPRIL
     Indication: HYPERTENSION
     Dosage: UNK, UNKNOWN
     Route: 065
     Dates: start: 2001
  17. DEPO-TESTOSTERONE [Suspect]
     Active Substance: TESTOSTERONE CYPIONATE
     Indication: ANDROGEN REPLACEMENT THERAPY
     Dosage: UNK, UNKNOWN
     Route: 065
     Dates: start: 201203, end: 201204
  18. GABAPENTIN. [Concomitant]
     Active Substance: GABAPENTIN
     Indication: SEIZURE
     Dosage: 100 MG, PRN
     Route: 065
     Dates: start: 2014
  19. LISINOPRIL. [Concomitant]
     Active Substance: LISINOPRIL
     Indication: CARDIAC FAILURE
  20. GLYBURIDE. [Concomitant]
     Active Substance: GLYBURIDE
     Indication: TYPE 2 DIABETES MELLITUS
     Dosage: 5 MG, BID
     Route: 048
     Dates: start: 2014
  21. MELOXICAM. [Concomitant]
     Active Substance: MELOXICAM
     Indication: INFLAMMATION
     Route: 048
     Dates: start: 2012, end: 2014
  22. METHOCARBAMOL. [Concomitant]
     Active Substance: METHOCARBAMOL
     Indication: MUSCLE SPASMS
     Dosage: UNK, UNKNOWN
     Route: 065
     Dates: start: 2014
  23. PIOGLITAZONE AND METFORMIN [Concomitant]
     Active Substance: METFORMIN HYDROCHLORIDE\PIOGLITAZONE HYDROCHLORIDE
     Indication: TYPE 2 DIABETES MELLITUS
     Dosage: UNK, UNKNOWN
     Route: 065
     Dates: start: 2014

REACTIONS (4)
  - Antiphospholipid antibodies [Unknown]
  - Arteriosclerosis [Unknown]
  - Thrombosis [Unknown]
  - Gangrene [Unknown]

NARRATIVE: CASE EVENT DATE: 20140527
